FAERS Safety Report 25322079 (Version 1)
Quarter: 2025Q2

REPORT INFORMATION
  Report Type: Report from Study
  Country: BR (occurrence: BR)
  Receive Date: 20250516
  Receipt Date: 20250516
  Transmission Date: 20250717
  Serious: Yes (Other)
  Sender: JOHNSON AND JOHNSON
  Company Number: BR-JNJFOC-20250374808

PATIENT
  Age: 56 Year
  Sex: Female
  Weight: 78 kg

DRUGS (2)
  1. GOLIMUMAB [Suspect]
     Active Substance: GOLIMUMAB
     Indication: Product used for unknown indication
     Route: 058
     Dates: start: 202406
  2. GOLIMUMAB [Suspect]
     Active Substance: GOLIMUMAB

REACTIONS (5)
  - Ankylosing spondylitis [Unknown]
  - Thermal burn [Recovered/Resolved]
  - Axial spondyloarthritis [Unknown]
  - Latent tuberculosis [Not Recovered/Not Resolved]
  - Burn infection [Unknown]
